FAERS Safety Report 7512401-3 (Version None)
Quarter: 2011Q2

REPORT INFORMATION
  Report Type: 
  Country: None (occurrence: None)
  Receive Date: 20110531
  Receipt Date: 20110520
  Transmission Date: 20111010
  Serious: Yes (Hospitalization, Other)
  Sender: FDA-Public Use
  Company Number: JP-ROCHE-763820

PATIENT
  Sex: Female
  Weight: 57 kg

DRUGS (15)
  1. XELODA [Suspect]
     Dosage: DOSAGE IS UNCERTAIN.
     Route: 048
     Dates: start: 20110426, end: 20110510
  2. OXALIPLATIN [Suspect]
     Indication: COLON CANCER
     Dosage: DOSAGE IS UNCERTAIN
     Route: 041
     Dates: start: 20100921, end: 20110222
  3. OXALIPLATIN [Concomitant]
     Dosage: DOSAGE IS UNCERTAIN.
     Route: 041
     Dates: start: 20100921, end: 20110222
  4. AVASTIN [Suspect]
     Route: 041
     Dates: start: 20100921, end: 20110222
  5. IRINOTECAN HCL [Concomitant]
     Dosage: DOSAGE IS UNCERTAIN
     Route: 041
     Dates: start: 20090317
  6. PROTECADIN [Concomitant]
     Route: 048
     Dates: start: 20100713
  7. DIOVAN [Suspect]
     Dosage: DOSAGE IS UNCERTAIN.
     Route: 048
  8. IRINOTECAN HCL [Concomitant]
     Dosage: DOSAGE IS UNCERTAIN.
     Route: 041
     Dates: start: 20090317
  9. XELODA [Suspect]
     Indication: COLON CANCER METASTATIC
     Dosage: DOSAGE IS UNCERTAIN
     Route: 048
     Dates: start: 20100921, end: 20110222
  10. PROTECADIN [Suspect]
     Dosage: DOSAGE IS UNCERTAIN.
     Route: 048
  11. AVASTIN [Suspect]
     Dosage: DOSAGE IS UNCERTAIN.
     Route: 041
     Dates: start: 20110426
  12. FLUOROURACIL [Concomitant]
     Dosage: DOSAGE IS UNCERTAIN
     Route: 041
     Dates: start: 20090317
  13. AVASTIN [Suspect]
     Indication: COLON CANCER
     Route: 041
     Dates: start: 20090317, end: 20100831
  14. FLUOROURACIL [Concomitant]
     Indication: COLON CANCER
     Dosage: DOSAGE IS UNCERTAIN
     Route: 040
     Dates: start: 20090317
  15. LEUCOVORIN CALCIUM [Concomitant]
     Dosage: DOSAGE IS UNCERTAIN.
     Route: 041
     Dates: start: 20090317

REACTIONS (4)
  - RENAL FAILURE ACUTE [None]
  - HYPERTENSION [None]
  - VOMITING [None]
  - DIARRHOEA [None]
